FAERS Safety Report 16668439 (Version 1)
Quarter: 2019Q3

REPORT INFORMATION
  Report Type: Spontaneous
  Country: US (occurrence: US)
  Receive Date: 20190803
  Receipt Date: 20190803
  Transmission Date: 20191004
  Serious: Yes (Disabling)
  Sender: FDA-Public Use
  Company Number: None

PATIENT
  Age: 61 Year
  Sex: Male
  Weight: 66.6 kg

DRUGS (8)
  1. MODAFINIL 200 MG TABLET GENERIC FOR PROVIGIL [Suspect]
     Active Substance: MODAFINIL
     Indication: NARCOLEPSY
     Dosage: ?          QUANTITY:30 TABLET(S);?
     Route: 048
     Dates: start: 20190710, end: 20190715
  2. FLONASE [Concomitant]
     Active Substance: FLUTICASONE PROPIONATE
  3. VITAMIN B12 [Concomitant]
     Active Substance: CYANOCOBALAMIN
  4. CLOMIPHENE CITRATE. [Concomitant]
     Active Substance: CLOMIPHENE CITRATE
  5. METFORMIN [Concomitant]
     Active Substance: METFORMIN HYDROCHLORIDE
  6. PITOLISANT [Concomitant]
     Active Substance: PITOLISANT
  7. FINASTERIDE. [Concomitant]
     Active Substance: FINASTERIDE
  8. VITAMIN D [Concomitant]
     Active Substance: VITAMIN D NOS

REACTIONS (7)
  - Dizziness [None]
  - Abdominal pain [None]
  - Drug ineffective [None]
  - Cognitive disorder [None]
  - Disorientation [None]
  - Product substitution issue [None]
  - Suspected product quality issue [None]
